FAERS Safety Report 11092869 (Version 2)
Quarter: 2015Q3

REPORT INFORMATION
  Report Type: Report from Study
  Country: US (occurrence: None)
  Receive Date: 20150505
  Receipt Date: 20150811
  Transmission Date: 20151125
  Serious: Yes (Hospitalization, Other)
  Sender: FDA-Public Use
  Company Number: US-2015CRT000102

PATIENT
  Age: 20 Year
  Sex: Female

DRUGS (1)
  1. KORLYM [Suspect]
     Active Substance: MIFEPRISTONE
     Indication: PITUITARY-DEPENDENT CUSHING^S SYNDROME
     Route: 048
     Dates: start: 201310, end: 2014

REACTIONS (15)
  - Cellulitis [None]
  - Skin infection [None]
  - Cardiac failure congestive [None]
  - Renal failure [None]
  - Fall [None]
  - Infection [None]
  - Oxygen saturation decreased [None]
  - Dyspnoea exertional [None]
  - Localised infection [None]
  - Groin infection [None]
  - Headache [None]
  - Dizziness [None]
  - Feeling abnormal [None]
  - Eye discharge [None]
  - Decreased appetite [None]

NARRATIVE: CASE EVENT DATE: 201311
